FAERS Safety Report 4630109-9 (Version None)
Quarter: 2005Q2

REPORT INFORMATION
  Report Type: 
  Country: None (occurrence: None)
  Receive Date: 20050408
  Receipt Date: 20050330
  Transmission Date: 20051028
  Serious: Yes (Hospitalization)
  Sender: FDA-Public Use
  Company Number: US-GLAXOSMITHKLINE-A0551924A

PATIENT
  Age: 39 Year
  Sex: Female

DRUGS (5)
  1. PAXIL CR [Suspect]
     Indication: DEPRESSION
     Dosage: 37.5MG PER DAY
     Route: 048
     Dates: start: 20010101, end: 20050301
  2. PAXIL [Suspect]
     Indication: DEPRESSION
     Route: 065
  3. EFFEXOR XR [Suspect]
     Indication: DEPRESSION
     Route: 048
  4. PROVIGIL [Concomitant]
  5. KLONOPIN [Concomitant]

REACTIONS (16)
  - BEREAVEMENT REACTION [None]
  - DEPRESSION [None]
  - DIZZINESS [None]
  - DRUG INEFFECTIVE [None]
  - DRUG WITHDRAWAL SYNDROME [None]
  - FEELING ABNORMAL [None]
  - FEELING HOT [None]
  - INFECTION [None]
  - MEMORY IMPAIRMENT [None]
  - MIGRAINE [None]
  - NAUSEA [None]
  - NIGHT SWEATS [None]
  - PRURITUS [None]
  - THIRST [None]
  - TREATMENT NONCOMPLIANCE [None]
  - VOMITING [None]
